FAERS Safety Report 6599849-9 (Version None)
Quarter: 2010Q1

REPORT INFORMATION
  Report Type: 
  Country: None (occurrence: None)
  Receive Date: 20100217
  Receipt Date: 20100127
  Transmission Date: 20100710
  Serious: Yes (Death, Hospitalization)
  Sender: FDA-Public Use
  Company Number: 2010AC000090

PATIENT
  Age: 76 Year

DRUGS (10)
  1. DIGOXIN [Suspect]
     Dosage: PO
     Route: 048
     Dates: start: 20061012
  2. GLIPIZIDE [Concomitant]
  3. COUMADIN [Concomitant]
  4. VYTORIN [Concomitant]
  5. LASIX [Concomitant]
  6. NORVASC [Concomitant]
  7. COZOLE [Concomitant]
  8. TRICOR [Concomitant]
  9. METOLAZONE [Concomitant]
  10. COREG [Concomitant]

REACTIONS (17)
  - ABDOMINAL DISTENSION [None]
  - ABDOMINAL PAIN [None]
  - ABDOMINAL TENDERNESS [None]
  - ARTHRALGIA [None]
  - ASTHENIA [None]
  - BRADYCARDIA [None]
  - DECREASED APPETITE [None]
  - DIABETIC NEPHROPATHY [None]
  - ECONOMIC PROBLEM [None]
  - HYPOKALAEMIA [None]
  - ILEUS [None]
  - KNEE ARTHROPLASTY [None]
  - MULTIPLE INJURIES [None]
  - PAIN [None]
  - RENAL FAILURE [None]
  - UNEVALUABLE EVENT [None]
  - VOMITING [None]
